FAERS Safety Report 5484229-X (Version None)
Quarter: 2007Q4

REPORT INFORMATION
  Report Type: 
  Country: None (occurrence: None)
  Receive Date: 20071012
  Receipt Date: 20071002
  Transmission Date: 20080405
  Serious: Yes (Other)
  Sender: FDA-Public Use
  Company Number: US-ABBOTT-07P-163-0419224-00

PATIENT
  Sex: Female
  Weight: 59.928 kg

DRUGS (15)
  1. HUMIRA [Suspect]
     Indication: RHEUMATOID ARTHRITIS
     Dosage: SYRINGE
     Route: 058
     Dates: start: 20050101, end: 20060101
  2. HUMIRA [Suspect]
     Dosage: PEN
     Dates: start: 20070501
  3. CLOPIDOGREL [Suspect]
     Indication: DRUG USE FOR UNKNOWN INDICATION
     Route: 048
     Dates: start: 20050101, end: 20060901
  4. CICLOSPORIN [Concomitant]
     Indication: DRUG USE FOR UNKNOWN INDICATION
     Route: 047
  5. METHOTREXATE [Concomitant]
     Indication: DRUG USE FOR UNKNOWN INDICATION
     Route: 048
  6. FOLIC ACID [Concomitant]
     Indication: DRUG USE FOR UNKNOWN INDICATION
     Route: 048
  7. ESTROGENS CONJUGATED [Concomitant]
     Indication: DRUG USE FOR UNKNOWN INDICATION
  8. ALPRAZOLAM [Concomitant]
     Indication: DRUG USE FOR UNKNOWN INDICATION
  9. LOSARTAN POTASSIUM [Concomitant]
     Indication: DRUG USE FOR UNKNOWN INDICATION
  10. PANTOLOL [Concomitant]
     Indication: DRUG USE FOR UNKNOWN INDICATION
     Route: 047
  11. ACETYLSALICYLIC ACID [Concomitant]
     Indication: DRUG USE FOR UNKNOWN INDICATION
  12. VITAMINS [Concomitant]
     Indication: DRUG USE FOR UNKNOWN INDICATION
  13. GLUCOSAMINE [Concomitant]
     Indication: DRUG USE FOR UNKNOWN INDICATION
  14. GUAIFENESIN [Concomitant]
     Indication: DRUG USE FOR UNKNOWN INDICATION
  15. ESCITALOPRAM OXALATE [Concomitant]
     Indication: DRUG USE FOR UNKNOWN INDICATION

REACTIONS (17)
  - ARTHROPOD BITE [None]
  - BED BUG INFESTATION [None]
  - DIARRHOEA [None]
  - GAIT DISTURBANCE [None]
  - GLAUCOMA [None]
  - INCREASED TENDENCY TO BRUISE [None]
  - JOINT CONTRACTURE [None]
  - JOINT RANGE OF MOTION DECREASED [None]
  - JOINT SWELLING [None]
  - LIGAMENT DISORDER [None]
  - NODULE [None]
  - OEDEMA PERIPHERAL [None]
  - PAIN [None]
  - PAIN IN EXTREMITY [None]
  - RASH PRURITIC [None]
  - TENDON DISORDER [None]
  - VISION BLURRED [None]
